FAERS Safety Report 14781177 (Version 1)
Quarter: 2018Q2

REPORT INFORMATION
  Report Type: Spontaneous
  Country: US (occurrence: US)
  Receive Date: 20180412
  Receipt Date: 20180412
  Transmission Date: 20180711
  Serious: No
  Sender: FDA-Public Use
  Company Number: None

PATIENT
  Sex: Female

DRUGS (2)
  1. SUTENT [Suspect]
     Active Substance: SUNITINIB MALATE
     Indication: NEOPLASM
     Route: 048
     Dates: start: 20161101
  2. SUTENT [Suspect]
     Active Substance: SUNITINIB MALATE
     Indication: NEUROENDOCRINE TUMOUR
     Route: 048
     Dates: start: 20161101

REACTIONS (8)
  - Hair disorder [None]
  - Rosacea [None]
  - Nausea [None]
  - Back pain [None]
  - Muscle spasms [None]
  - Palmar-plantar erythrodysaesthesia syndrome [None]
  - Skin discolouration [None]
  - Epistaxis [None]
